FAERS Safety Report 6552510-9 (Version None)
Quarter: 2010Q1

REPORT INFORMATION
  Report Type: 
  Country: None (occurrence: None)
  Receive Date: 20100126
  Receipt Date: 20090304
  Transmission Date: 20100710
  Serious: Yes (Other)
  Sender: FDA-Public Use
  Company Number: US-PFIZER INC-2009167102

PATIENT
  Sex: Male
  Weight: 103 kg

DRUGS (4)
  1. CELEBREX [Suspect]
     Indication: ARTHRITIS
     Dates: start: 20090101
  2. SYNTHROID [Concomitant]
     Dosage: UNK
     Route: 048
  3. ACETYLSALICYLIC ACID [Concomitant]
     Dosage: UNK
     Route: 048
  4. DIGITEK [Concomitant]
     Dosage: UNK
     Route: 048

REACTIONS (2)
  - ANGER [None]
  - TINNITUS [None]
